FAERS Safety Report 23198425 (Version 2)
Quarter: 2023Q4

REPORT INFORMATION
  Report Type: Spontaneous
  Country: AU (occurrence: AU)
  Receive Date: 20231117
  Receipt Date: 20231128
  Transmission Date: 20240109
  Serious: No
  Sender: FDA-Public Use
  Company Number: AU-PFIZER INC-202300366075

PATIENT
  Sex: Male

DRUGS (1)
  1. PAXLOVID [Suspect]
     Active Substance: NIRMATRELVIR\RITONAVIR
     Indication: COVID-19 treatment
     Dosage: UNK
     Dates: start: 20231111, end: 20231116

REACTIONS (9)
  - Feeling abnormal [Unknown]
  - Hypoacusis [Unknown]
  - Taste disorder [Unknown]
  - Post-acute COVID-19 syndrome [Unknown]
  - Cough [Unknown]
  - Influenza like illness [Unknown]
  - Nasal congestion [Unknown]
  - Asthenia [Unknown]
  - Fatigue [Unknown]

NARRATIVE: CASE EVENT DATE: 20231101
